FAERS Safety Report 24222994 (Version 2)
Quarter: 2024Q3

REPORT INFORMATION
  Report Type: Spontaneous
  Country: US (occurrence: US)
  Receive Date: 20240819
  Receipt Date: 20240819
  Transmission Date: 20241016
  Serious: No
  Sender: JOHNSON AND JOHNSON
  Company Number: US-JNJFOC-20240831001

PATIENT
  Age: 85 Year
  Sex: Male

DRUGS (3)
  1. XARELTO [Suspect]
     Active Substance: RIVAROXABAN
     Indication: Cardiac murmur
     Route: 048
  2. KLONOPIN [Concomitant]
     Active Substance: CLONAZEPAM
  3. XANAX [Concomitant]
     Active Substance: ALPRAZOLAM

REACTIONS (7)
  - Product size issue [Unknown]
  - Dizziness [Unknown]
  - Vertigo [Unknown]
  - Loss of personal independence in daily activities [Unknown]
  - Gastrointestinal disorder [Unknown]
  - Constipation [Unknown]
  - Off label use [Unknown]
